FAERS Safety Report 5098524-X (Version None)
Quarter: 2006Q3

REPORT INFORMATION
  Report Type: 
  Country: None (occurrence: None)
  Receive Date: 20060906
  Receipt Date: 20060214
  Transmission Date: 20061208
  Serious: No
  Sender: FDA-Public Use
  Company Number: US-GLAXOSMITHKLINE-A0593718A

PATIENT
  Sex: Male

DRUGS (1)
  1. REQUIP [Suspect]
     Dosage: 1MG AT NIGHT
     Route: 048

REACTIONS (1)
  - DRUG INEFFECTIVE [None]
